FAERS Safety Report 10217903 (Version 1)
Quarter: 2014Q2

REPORT INFORMATION
  Report Type: Spontaneous
  Country: US (occurrence: US)
  Receive Date: 20140605
  Receipt Date: 20140605
  Transmission Date: 20141212
  Serious: Yes (Hospitalization)
  Sender: FDA-Public Use
  Company Number: US-BEH-2014042853

PATIENT
  Sex: Male
  Weight: 51 kg

DRUGS (22)
  1. HIZENTRA [Suspect]
     Dosage: INFUSE VIA 3-4 SITES OVER 1 HOUR
     Route: 058
  2. HIZENTRA [Suspect]
     Indication: IMMUNODEFICIENCY COMMON VARIABLE
     Dosage: INFUSE VIA 3-4 SITES OVER 1 HOUR
     Route: 058
  3. EPI PEN [Concomitant]
  4. OXYGEN [Concomitant]
  5. ROPINIROLE [Concomitant]
  6. FUROSEMIDE [Concomitant]
  7. FLUOCINONIDE [Concomitant]
  8. PRAVASTATIN [Concomitant]
  9. LORAZEPAM [Concomitant]
  10. TAMSULOSIN [Concomitant]
  11. SULFAMETHOXAZOLE [Concomitant]
  12. TUMS [Concomitant]
  13. PULMICORT [Concomitant]
  14. DILTIAZEM [Concomitant]
  15. SPIRONOLACTONE [Concomitant]
  16. OMEPRAZOLE [Concomitant]
  17. THEOPHYLLINE [Concomitant]
  18. COMBIVENT [Concomitant]
  19. VITAMIN D3 [Concomitant]
  20. MUCINEX [Concomitant]
  21. CYANOCOBALAMIN [Concomitant]
  22. DUONEB [Concomitant]

REACTIONS (4)
  - Lethargy [Unknown]
  - Fluid retention [Unknown]
  - Dysphagia [Unknown]
  - Weight decreased [Unknown]
